FAERS Safety Report 12225098 (Version 3)
Quarter: 2017Q1

REPORT INFORMATION
  Report Type: Spontaneous
  Country: US (occurrence: US)
  Receive Date: 20160331
  Receipt Date: 20170201
  Transmission Date: 20170428
  Serious: Yes (Hospitalization)
  Sender: FDA-Public Use
  Company Number: US-BAYER-2016-061733

PATIENT
  Sex: Female

DRUGS (5)
  1. MIRALAX [Suspect]
     Active Substance: POLYETHYLENE GLYCOL 3350
     Indication: GASTROINTESTINAL DISORDER
     Dosage: TOOK DOUBLE DOSE AT NIGHT
     Dates: start: 20160329
  2. CHEMOTHERAPEUTICS FOR TOPICAL USE [Concomitant]
  3. MIRALAX [Suspect]
     Active Substance: POLYETHYLENE GLYCOL 3350
     Indication: GASTROINTESTINAL DISORDER
     Dosage: 1 DF, UNK
     Route: 048
     Dates: start: 201602
  4. ONDANSETRON [Concomitant]
     Active Substance: ONDANSETRON
  5. BAYER LOW DOSE [Suspect]
     Active Substance: ASPIRIN
     Dosage: 1 DF, UNK
     Route: 048

REACTIONS (5)
  - Nausea [None]
  - Wrong technique in product usage process [None]
  - Product use issue [None]
  - Product use issue [None]
  - Product taste abnormal [Unknown]

NARRATIVE: CASE EVENT DATE: 201602
